FAERS Safety Report 9201666 (Version 1)
Quarter: 2013Q1

REPORT INFORMATION
  Report Type: Spontaneous
  Country: FR (occurrence: None)
  Receive Date: 20130327
  Receipt Date: 20130327
  Transmission Date: 20140127
  Serious: Yes (Hospitalization)
  Sender: FDA-Public Use
  Company Number: ACET20130009

PATIENT
  Age: 17 Year
  Sex: Male

DRUGS (2)
  1. Q-PAP [Suspect]
     Indication: PRODUCT USED FOR UNKNOWN INDICATION
  2. PREDNISONE [Suspect]
     Indication: PRODUCT USED FOR UNKNOWN INDICATION
     Route: 048

REACTIONS (4)
  - Hepatitis [None]
  - Epstein-Barr virus infection [None]
  - Cholestasis [None]
  - Ejection fraction decreased [None]
